FAERS Safety Report 26057777 (Version 1)
Quarter: 2025Q4

REPORT INFORMATION
  Report Type: Spontaneous
  Country: EU (occurrence: EU)
  Receive Date: 20251118
  Receipt Date: 20251118
  Transmission Date: 20260118
  Serious: Yes (Hospitalization, Other)
  Sender: HIKMA
  Company Number: None

PATIENT
  Age: 71 Year
  Sex: Female

DRUGS (8)
  1. CISPLATIN [Suspect]
     Active Substance: CISPLATIN
     Indication: Lung adenocarcinoma stage IV
     Dosage: 103 MG OF CISPLATIN IN 500 ML OF 0.9% SODIUM CHLORIDE,~CYCLICAL
     Route: 042
     Dates: start: 20250711, end: 20250910
  2. KEYTRUDA [Suspect]
     Active Substance: PEMBROLIZUMAB
     Indication: Lung adenocarcinoma stage IV
     Dosage: 92 MILLIGRAM, SINGLE, CYCLICAL
     Route: 042
     Dates: start: 20250822, end: 20250910
  3. PEMETREXED [Suspect]
     Active Substance: PEMETREXED
     Indication: Lung adenocarcinoma stage IV
     Dosage: 690 MG IN 100 ML OF 0.9% SODIUM CHLORIDE, CYCLICAL
     Route: 042
     Dates: start: 20250711, end: 20250910
  4. FOLI DOCE [Concomitant]
     Indication: Product used for unknown indication
     Dosage: 1 DOSAGE FORM, 28 CAPSULES
     Route: 048
     Dates: start: 20250704
  5. DEXAMETHASONE ACETATE [Concomitant]
     Active Substance: DEXAMETHASONE ACETATE
     Indication: Product used for unknown indication
     Dosage: 8 MILLIGRAM, QD
     Route: 048
     Dates: start: 20250609
  6. HIBOR [Concomitant]
     Indication: Product used for unknown indication
     Dosage: 1 DOSAGE FORM, QD
     Route: 058
     Dates: start: 20250910
  7. OMEPRAZOLE [Concomitant]
     Active Substance: OMEPRAZOLE
     Indication: Product used for unknown indication
     Dosage: 20 MILLIGRAM, 28 CAPSULES
     Route: 048
     Dates: start: 20250704
  8. SULFAMETHOXAZOLE\TRIMETHOPRIM [Concomitant]
     Active Substance: SULFAMETHOXAZOLE\TRIMETHOPRIM
     Indication: Product used for unknown indication
     Dosage: 1 DOSAGE FORM, BID
     Route: 048
     Dates: start: 20250707

REACTIONS (1)
  - Toxic epidermal necrolysis [Recovering/Resolving]

NARRATIVE: CASE EVENT DATE: 20251004
